FAERS Safety Report 19846201 (Version 2)
Quarter: 2021Q4

REPORT INFORMATION
  Report Type: Report from Study
  Country: FR (occurrence: FR)
  Receive Date: 20210916
  Receipt Date: 20211001
  Transmission Date: 20220303
  Serious: Yes (Hospitalization, Other)
  Sender: FDA-Public Use
  Company Number: FR-CELLTRION INC.-2021FR012396

PATIENT

DRUGS (13)
  1. INFLECTRA [Suspect]
     Active Substance: INFLIXIMAB-DYYB
     Indication: Product used for unknown indication
     Dosage: 5 MG/KG (11 INFUSIONS)
     Route: 065
     Dates: start: 201707, end: 201804
  2. INFLIXIMAB [Suspect]
     Active Substance: INFLIXIMAB
     Indication: Axial spondyloarthritis
     Dosage: 460 MG (VIAL, DOSE: 5 MG/KG)
     Route: 042
     Dates: start: 20190604
  3. INFLIXIMAB [Suspect]
     Active Substance: INFLIXIMAB
     Dosage: 460 MG (VIAL, DOSE: 5 MG/KG)
     Route: 042
     Dates: start: 201804, end: 20190213
  4. LOXEN [Concomitant]
     Indication: Product used for unknown indication
     Dosage: 50 MG, ONE TABLET IN THE EVENING
     Route: 065
  5. CALCIUM [Concomitant]
     Active Substance: CALCIUM
     Indication: Product used for unknown indication
     Dosage: 256 MG, QD
     Route: 065
     Dates: start: 2017
  6. CALCIUM [Concomitant]
     Active Substance: CALCIUM
     Dosage: 310 MG, QD
     Route: 065
     Dates: start: 2016
  7. CANDESARTAN [Concomitant]
     Active Substance: CANDESARTAN
     Indication: Product used for unknown indication
     Dosage: 8 MG, QD (IN THE MORNING)
     Route: 065
  8. ZOLPIDEM TARTRATE [Concomitant]
     Active Substance: ZOLPIDEM TARTRATE
     Indication: Product used for unknown indication
     Dosage: 10 MG, QD (ONE TABLET DAILY)
     Route: 065
  9. CALCIDOSE [Concomitant]
     Indication: Product used for unknown indication
     Dosage: 500 MG (1 SACHET IN THE MORNING AND IN THE EVENING)
     Route: 065
  10. KARDEGIC [Concomitant]
     Active Substance: ASPIRIN DL-LYSINE
     Indication: Product used for unknown indication
     Dosage: 160 MG, QD
     Route: 065
  11. CITALOPRAM [Concomitant]
     Active Substance: CITALOPRAM HYDROBROMIDE
     Indication: Product used for unknown indication
     Dosage: 10 MG, QD (ONE TABLET IN THE MORNING)
     Route: 065
  12. CHOLECALCIFEROL [Concomitant]
     Active Substance: CHOLECALCIFEROL
     Indication: Product used for unknown indication
     Dosage: ONE AMPOULE, MONTHLY
     Route: 065
  13. PRAZEPAM [Concomitant]
     Active Substance: PRAZEPAM
     Indication: Anxiety
     Dosage: 10 MG, QD (ONE TABLET)
     Route: 065

REACTIONS (24)
  - Axial spondyloarthritis [Not Recovered/Not Resolved]
  - Confusional state [Unknown]
  - Cryoglobulins present [Unknown]
  - Eating disorder [Unknown]
  - Folate deficiency [Unknown]
  - Hyperparathyroidism [Unknown]
  - Ill-defined disorder [Unknown]
  - Iron deficiency [Unknown]
  - Malabsorption [Unknown]
  - Peripheral sensory neuropathy [Unknown]
  - Poor quality sleep [Not Recovered/Not Resolved]
  - Proteinuria [Unknown]
  - Self esteem decreased [Unknown]
  - Sleep disorder [Not Recovered/Not Resolved]
  - Syringomyelia [Not Recovered/Not Resolved]
  - Vitamin B6 deficiency [Unknown]
  - Vitamin B12 deficiency [Recovering/Resolving]
  - Vitamin D deficiency [Unknown]
  - Fatigue [Unknown]
  - Headache [Unknown]
  - Insomnia [Not Recovered/Not Resolved]
  - Neuropathy peripheral [Not Recovered/Not Resolved]
  - Sialoadenitis [Unknown]
  - Product use in unapproved indication [Unknown]

NARRATIVE: CASE EVENT DATE: 20190601
